FAERS Safety Report 4618665-8 (Version None)
Quarter: 2005Q1

REPORT INFORMATION
  Report Type: 
  Country: None (occurrence: None)
  Receive Date: 20050324
  Receipt Date: 20050303
  Transmission Date: 20050727
  Serious: Yes (Death, Other)
  Sender: FDA-Public Use
  Company Number: USA050291131

PATIENT
  Age: 54 Year
  Sex: Female
  Weight: 62 kg

DRUGS (8)
  1. XIGRIS [Suspect]
     Indication: SEPSIS
     Dosage: 24 UG/KG/HR
     Dates: start: 20021231, end: 20021231
  2. NEOSYNEPHRINE (PHENYLEPHRINE HYDROCHLORIDE) [Concomitant]
  3. PRIMAXIN [Concomitant]
  4. VANCOMYCIN [Concomitant]
  5. LEVAQUIN (LEVOFLOXACIN0 [Concomitant]
  6. TYLENOL (CAPLET) [Concomitant]
  7. NEURONTIN (GABAPENTIN PFIZER) [Concomitant]
  8. BACLOFEN [Concomitant]

REACTIONS (6)
  - ARRHYTHMIA [None]
  - CARDIAC ARREST [None]
  - COMA [None]
  - ENTEROCOCCAL INFECTION [None]
  - HAEMATOCHEZIA [None]
  - PUPIL FIXED [None]
